FAERS Safety Report 13415599 (Version 2)
Quarter: 2017Q2

REPORT INFORMATION
  Report Type: Spontaneous
  Country: NZ (occurrence: NZ)
  Receive Date: 20170407
  Receipt Date: 20170417
  Transmission Date: 20170830
  Serious: Yes (Other)
  Sender: FDA-Public Use
  Company Number: NZ-JNJFOC-20170402429

PATIENT

DRUGS (2)
  1. ADALIMUMAB [Suspect]
     Active Substance: ADALIMUMAB
     Indication: CROHN^S DISEASE
     Route: 065
  2. INFLIXIMAB, RECOMBINANT [Suspect]
     Active Substance: INFLIXIMAB
     Indication: CROHN^S DISEASE
     Route: 042

REACTIONS (11)
  - Dermatitis [Unknown]
  - Diarrhoea [Unknown]
  - Paraesthesia [Unknown]
  - Erectile dysfunction [Unknown]
  - Cardiomyopathy [Unknown]
  - Serum sickness [Unknown]
  - Vomiting [Unknown]
  - Genital herpes [Unknown]
  - Varicella zoster virus infection [Unknown]
  - Headache [Unknown]
  - Drug ineffective [Unknown]
